FAERS Safety Report 18128321 (Version 1)
Quarter: 2020Q3

REPORT INFORMATION
  Report Type: Spontaneous
  Country: US (occurrence: US)
  Receive Date: 20200807
  Receipt Date: 20200807
  Transmission Date: 20201103
  Serious: Yes (Life-Threatening, Hospitalization)
  Sender: FDA-Public Use
  Company Number: None

PATIENT
  Age: 58 Year
  Sex: Male
  Weight: 106.4 kg

DRUGS (6)
  1. REMDESIVIR 100MG IV IN 100ML NS [Suspect]
     Active Substance: REMDESIVIR
     Indication: COVID-19
     Route: 041
     Dates: start: 20200804, end: 20200806
  2. VASOPRESSIN. [Concomitant]
     Active Substance: VASOPRESSIN
     Dates: start: 20200804
  3. ANGIOTENSIN II [Concomitant]
     Active Substance: ANGIOTENSIN II
     Dates: start: 20200806
  4. PHENYLEPHRINE [Concomitant]
     Active Substance: PHENYLEPHRINE HYDROCHLORIDE
     Dates: start: 20200806
  5. NOREPINEPHERINE [Concomitant]
     Active Substance: NOREPINEPHRINE\NOREPINEPHRINE BITARTRATE
     Dates: start: 20200804
  6. EPINEPHERINE [Concomitant]
     Active Substance: EPINEPHRINE
     Dates: start: 20200805

REACTIONS (7)
  - Lactic acidosis [None]
  - Dialysis [None]
  - Hypoxia [None]
  - Renal injury [None]
  - Acute respiratory failure [None]
  - Shock [None]
  - Blood lactic acid increased [None]

NARRATIVE: CASE EVENT DATE: 20200805
